FAERS Safety Report 5092956-1 (Version None)
Quarter: 2006Q3

REPORT INFORMATION
  Report Type: 
  Country: None (occurrence: None)
  Receive Date: 20060828
  Receipt Date: 20060817
  Transmission Date: 20061208
  Serious: Yes (Other)
  Sender: FDA-Public Use
  Company Number: SPV1-2006-00457

PATIENT
  Age: 19 Year
  Sex: Female

DRUGS (3)
  1. CARBAMAZEPINE EXTENDED-RELEASE [Suspect]
  2. AUGMENTIN /01000301/(CLAVULANATE POTASSIUM, AMOXICILLIN) [Concomitant]
  3. METHYLPREDNISOLONE [Concomitant]

REACTIONS (4)
  - EOSINOPHILIC PNEUMONIA [None]
  - IMMUNOSUPPRESSION [None]
  - PNEUMONITIS [None]
  - PSEUDOMONAS INFECTION [None]
